FAERS Safety Report 21206983 (Version 1)
Quarter: 2022Q3

REPORT INFORMATION
  Report Type: Spontaneous
  Country: US (occurrence: None)
  Receive Date: 20220811
  Receipt Date: 20220811
  Transmission Date: 20221027
  Serious: Yes (Hospitalization)
  Sender: FDA-Public Use
  Company Number: None

PATIENT
  Age: 74 Year
  Sex: Male

DRUGS (1)
  1. PROLIA [Suspect]
     Active Substance: DENOSUMAB
     Dosage: 60MG OTHER SUBCUTANEOUS
     Route: 058
     Dates: start: 202108

REACTIONS (1)
  - Oesophagitis [None]

NARRATIVE: CASE EVENT DATE: 20220531
